FAERS Safety Report 10294172 (Version 2)
Quarter: 2014Q3

REPORT INFORMATION
  Report Type: Report from Study
  Country: PL (occurrence: PL)
  Receive Date: 20140711
  Receipt Date: 20140711
  Transmission Date: 20150326
  Serious: Yes (Other)
  Sender: FDA-Public Use
  Company Number: PL-ROCHE-1432471

PATIENT

DRUGS (7)
  1. CYCLAID [Concomitant]
     Active Substance: CYCLOSPORINE
  2. CELLCEPT [Suspect]
     Active Substance: MYCOPHENOLATE MOFETIL\MYCOPHENOLATE MOFETIL HYDROCHLORIDE
     Indication: PRODUCT USED FOR UNKNOWN INDICATION
     Route: 065
  3. ADVAGRAF [Concomitant]
     Active Substance: TACROLIMUS
  4. SIMULECT [Concomitant]
     Active Substance: BASILIXIMAB
  5. BASILIXIMAB [Concomitant]
     Active Substance: BASILIXIMAB
  6. ENCORTON [Concomitant]
     Active Substance: PREDNISONE
  7. CERTICAN [Concomitant]
     Active Substance: EVEROLIMUS

REACTIONS (2)
  - Colitis ulcerative [Unknown]
  - BK virus infection [Unknown]
